FAERS Safety Report 17899769 (Version 3)
Quarter: 2021Q1

REPORT INFORMATION
  Report Type: Report from Study
  Country: US (occurrence: US)
  Receive Date: 20200616
  Receipt Date: 20210115
  Transmission Date: 20210419
  Serious: No
  Sender: FDA-Public Use
  Company Number: NVSC2020US167829

PATIENT
  Age: 83 Year
  Sex: Male

DRUGS (1)
  1. COSENTYX [Suspect]
     Active Substance: SECUKINUMAB
     Indication: PSORIASIS
     Dosage: 300 MG (2 DOSES) (BENEATH THE SKIN USUALLY VIA INJECTION,)
     Route: 058

REACTIONS (3)
  - Product storage error [Unknown]
  - Drug ineffective [Unknown]
  - Psoriasis [Unknown]
